FAERS Safety Report 15716079 (Version 1)
Quarter: 2018Q4

REPORT INFORMATION
  Report Type: Spontaneous
  Country: US (occurrence: US)
  Receive Date: 20181213
  Receipt Date: 20181213
  Transmission Date: 20190205
  Serious: No
  Sender: FDA-Public Use
  Company Number: US-DRREDDYS-USA/USA/17/0094719

PATIENT
  Sex: Male
  Weight: 83 kg

DRUGS (2)
  1. OMEPRAZOLE DELAYED RELEASE CAPSULES 20 MG [Suspect]
     Active Substance: OMEPRAZOLE
     Indication: BARRETT^S OESOPHAGUS
     Route: 065
  2. VITAMIN B12 [Concomitant]
     Active Substance: CYANOCOBALAMIN
     Indication: PRODUCT USED FOR UNKNOWN INDICATION
     Route: 065

REACTIONS (4)
  - Laryngospasm [Unknown]
  - Muscular weakness [Unknown]
  - Feeling jittery [Unknown]
  - Muscle spasms [Unknown]
